FAERS Safety Report 10049982 (Version 1)
Quarter: 2014Q2

REPORT INFORMATION
  Report Type: Spontaneous
  Country: IN (occurrence: IN)
  Receive Date: 20140401
  Receipt Date: 20140401
  Transmission Date: 20141212
  Serious: Yes (Hospitalization)
  Sender: FDA-Public Use
  Company Number: IN-ROXANE LABORATORIES, INC.-2014-RO-00480RO

PATIENT
  Age: 45 Year
  Sex: Male

DRUGS (1)
  1. AZATHIOPRINE [Suspect]
     Indication: RENAL TRANSPLANT
     Dosage: 100 MG
     Route: 065

REACTIONS (1)
  - Aplasia pure red cell [Recovered/Resolved]
